FAERS Safety Report 8251372-1 (Version None)
Quarter: 2012Q2

REPORT INFORMATION
  Report Type: 
  Country: None (occurrence: None)
  Receive Date: 20120402
  Receipt Date: 20120329
  Transmission Date: 20120825
  Serious: Yes (Disabling)
  Sender: FDA-Public Use
  Company Number: CH-GLAXOSMITHKLINE-B0792631A

PATIENT
  Age: 39 Year
  Sex: Male
  Weight: 50 kg

DRUGS (2)
  1. ZOMETA [Suspect]
     Indication: PROPHYLAXIS
     Dosage: 4MG MONTHLY
     Route: 042
     Dates: start: 20110301, end: 20120306
  2. VOTRIENT [Suspect]
     Indication: RENAL CANCER
     Dosage: 800MG PER DAY
     Route: 048
     Dates: start: 20110301

REACTIONS (1)
  - OSTEONECROSIS [None]
